FAERS Safety Report 8980991 (Version 1)
Quarter: 2012Q4

REPORT INFORMATION
  Report Type: 
  Country: US (occurrence: US)
  Receive Date: 20121221
  Receipt Date: 20121221
  Transmission Date: 20130627
  Serious: Yes (Other)
  Sender: FDA-Public Use
  Company Number: US-009507513-2012SP000577

PATIENT
  Sex: Male

DRUGS (8)
  1. INTRONA [Suspect]
     Indication: HEPATITIS C
     Dosage: UNK UNK, Unknown
     Route: 065
     Dates: start: 19980102, end: 19981127
  2. PEG-INTRON [Suspect]
     Indication: HEPATITIS C
     Dosage: UNK
     Dates: start: 20010406, end: 20030404
  3. PEG-INTRON [Suspect]
     Dosage: UNK
     Dates: start: 20120113, end: 20120921
  4. RIBAVIRIN [Suspect]
     Indication: HEPATITIS C
     Dosage: UNK
     Dates: start: 20010406, end: 20030404
  5. RIBAVIRIN [Suspect]
     Dosage: UNK
     Dates: start: 20090102, end: 20091127
  6. RIBAVIRIN [Suspect]
     Dosage: UNK
     Dates: start: 20120112, end: 20120921
  7. VICTRELIS [Suspect]
     Indication: HEPATITIS C
     Dosage: UNK
     Dates: start: 20120211
  8. PEGASYS [Suspect]
     Indication: HEPATITIS C
     Dosage: UNK, Unknown
     Route: 065
     Dates: start: 20090102, end: 20091127

REACTIONS (22)
  - Hypothyroidism [Unknown]
  - Hypothyroidism [Unknown]
  - Flatulence [Unknown]
  - Gastric pH decreased [Unknown]
  - Feeling cold [Unknown]
  - Dysgeusia [Unknown]
  - Abdominal pain upper [Unknown]
  - Hepatitis C [Unknown]
  - Fatigue [Unknown]
  - Nausea [Unknown]
  - Headache [Unknown]
  - Insomnia [Unknown]
  - Dyspnoea [Unknown]
  - Chest pain [Unknown]
  - Tremor [Unknown]
  - Chest discomfort [Unknown]
  - Pain [Unknown]
  - Oropharyngeal pain [Unknown]
  - Constipation [Unknown]
  - Abdominal distension [Unknown]
  - Onychoclasis [Unknown]
  - Dry skin [Unknown]
